FAERS Safety Report 12252639 (Version 4)
Quarter: 2017Q1

REPORT INFORMATION
  Report Type: Spontaneous
  Country: US (occurrence: US)
  Receive Date: 20160411
  Receipt Date: 20170224
  Transmission Date: 20170428
  Serious: No
  Sender: FDA-Public Use
  Company Number: US-PFIZER INC-2016158400

PATIENT
  Age: 25 Year
  Sex: Female
  Weight: 88.45 kg

DRUGS (4)
  1. SOMAVERT [Suspect]
     Active Substance: PEGVISOMANT
     Indication: ACROMEGALY
     Dosage: 25 MG, ALTERNATE DAY (EVERY OTHER DAY)
     Route: 058
  2. CITALOPRAM [Concomitant]
     Active Substance: CITALOPRAM HYDROBROMIDE
     Indication: DEPRESSION
     Dosage: 20 MG, 1X/DAY
  3. SOMAVERT [Suspect]
     Active Substance: PEGVISOMANT
     Dosage: 25 MG, 1X/DAY
     Route: 058
     Dates: start: 201601
  4. NORTRIPTYLINE [Concomitant]
     Active Substance: NORTRIPTYLINE
     Indication: HEADACHE
     Dosage: 25 MG, 2X/DAY

REACTIONS (7)
  - Skin striae [Unknown]
  - Injection site swelling [Not Recovered/Not Resolved]
  - Nausea [Recovering/Resolving]
  - Headache [Recovering/Resolving]
  - Vomiting [Recovering/Resolving]
  - Decreased appetite [Recovering/Resolving]
  - Product use issue [Unknown]

NARRATIVE: CASE EVENT DATE: 20160101
